FAERS Safety Report 8411619-5 (Version None)
Quarter: 2012Q2

REPORT INFORMATION
  Report Type: 
  Country: None (occurrence: None)
  Receive Date: 20120531
  Receipt Date: 20120531
  Transmission Date: 20120825
  Serious: Yes (Death)
  Sender: FDA-Public Use
  Company Number: None

PATIENT
  Sex: Male

DRUGS (2)
  1. TEMODAR [Suspect]
     Indication: BRAIN NEOPLASM
     Dosage: 100 MG QD PO/ORAL
     Route: 048
     Dates: start: 20120405, end: 20120429
  2. TEMODAR [Suspect]
     Indication: BRAIN NEOPLASM MALIGNANT
     Dosage: 100 MG QD PO/ORAL
     Route: 048
     Dates: start: 20120405, end: 20120429

REACTIONS (1)
  - BRAIN NEOPLASM [None]
